FAERS Safety Report 8329333-3 (Version None)
Quarter: 2012Q2

REPORT INFORMATION
  Report Type: 
  Country: None (occurrence: None)
  Receive Date: 20120502
  Receipt Date: 20120312
  Transmission Date: 20120825
  Serious: No
  Sender: FDA-Public Use
  Company Number: US-ASTRAZENECA-2012SE17080

PATIENT
  Sex: Female

DRUGS (3)
  1. ZALMEDA [Interacting]
     Route: 065
  2. PREDNISONE [Concomitant]
     Indication: PAIN
  3. FASLODEX [Suspect]
     Indication: BREAST CANCER METASTATIC
     Route: 030
     Dates: start: 20111101

REACTIONS (13)
  - LACRIMATION INCREASED [None]
  - DRY EYE [None]
  - DRUG INTERACTION [None]
  - ABDOMINAL PAIN UPPER [None]
  - PAIN [None]
  - VISION BLURRED [None]
  - ORAL PAIN [None]
  - CONDITION AGGRAVATED [None]
  - RHINALGIA [None]
  - OEDEMA PERIPHERAL [None]
  - FATIGUE [None]
  - EYE IRRITATION [None]
  - NAUSEA [None]
